FAERS Safety Report 8905852 (Version 1)
Quarter: 2012Q4

REPORT INFORMATION
  Report Type: 
  Country: BR (occurrence: BR)
  Receive Date: 20121113
  Receipt Date: 20121113
  Transmission Date: 20130627
  Serious: Yes (Other)
  Sender: FDA-Public Use
  Company Number: BR-BAYER-2012-116517

PATIENT
  Age: 44 Year
  Sex: Female

DRUGS (4)
  1. BETAFERON [Suspect]
     Indication: SECONDARY PROGRESSIVE MULTIPLE SCLEROSIS
     Dosage: 1 ml, QOD
     Route: 058
     Dates: start: 201203
  2. CARBAMAZEPINE [Concomitant]
     Indication: TRIGEMINAL NEURALGIA
     Dosage: 4 DF, QD
     Route: 048
     Dates: start: 2005
  3. AMITRIPTYLINE [Concomitant]
     Indication: MUSCLE RELAXANT
     Dosage: 1 DF, QD
     Route: 048
  4. BACLOFEN [Concomitant]
     Indication: SECONDARY PROGRESSIVE MULTIPLE SCLEROSIS
     Dosage: 1 DF, BID
     Route: 048
     Dates: start: 2011

REACTIONS (5)
  - Somnolence [Recovered/Resolved]
  - Crying [Recovered/Resolved]
  - Headache [Not Recovered/Not Resolved]
  - Abasia [Not Recovered/Not Resolved]
  - Fall [Not Recovered/Not Resolved]
